FAERS Safety Report 9163842 (Version 1)
Quarter: 2013Q1

REPORT INFORMATION
  Report Type: Spontaneous
  Country: GB (occurrence: GB)
  Receive Date: 20130314
  Receipt Date: 20130314
  Transmission Date: 20140127
  Serious: Yes (Other)
  Sender: FDA-Public Use
  Company Number: GB-ELI_LILLY_AND_COMPANY-GB201303002381

PATIENT
  Sex: Female

DRUGS (8)
  1. HUMULIN 30% REGULAR, 70% NPH [Suspect]
     Indication: DIABETES MELLITUS
     Dosage: UNK, UNKNOWN
     Dates: start: 201302
  2. HUMULIN 30% REGULAR, 70% NPH [Suspect]
     Dosage: 12 DF, EACH MORNING
  3. HUMULIN 30% REGULAR, 70% NPH [Suspect]
     Dosage: 8 DF, EACH EVENING
  4. HUMULIN 30% REGULAR, 70% NPH [Suspect]
     Dosage: 14 DF, EACH MORNING
  5. HUMULIN 30% REGULAR, 70% NPH [Suspect]
     Dosage: 8 DF, EACH EVENING
  6. HUMULIN 30% REGULAR, 70% NPH [Suspect]
     Dosage: 16 DF, EACH MORNING
  7. HUMULIN 30% REGULAR, 70% NPH [Suspect]
     Dosage: 10 DF, EACH EVENING
  8. PREDNISOLONE [Concomitant]
     Indication: IMMUNE SYSTEM DISORDER
     Dosage: UNK, UNKNOWN

REACTIONS (5)
  - Blood glucose increased [Not Recovered/Not Resolved]
  - Blood ketone body [Not Recovered/Not Resolved]
  - Feeling abnormal [Not Recovered/Not Resolved]
  - Vision blurred [Not Recovered/Not Resolved]
  - Large intestinal ulcer [Not Recovered/Not Resolved]
